FAERS Safety Report 4822560-9 (Version None)
Quarter: 2005Q4

REPORT INFORMATION
  Report Type: 
  Country: None (occurrence: None)
  Receive Date: 20051104
  Receipt Date: 20521020
  Transmission Date: 20060501
  Serious: Yes (Hospitalization)
  Sender: FDA-Public Use
  Company Number: 2005-0008810

PATIENT
  Age: 54 Year
  Sex: Male

DRUGS (4)
  1. VIREAD [Suspect]
     Indication: HIV INFECTION
     Dosage: 300 MG, 1 IN 1 D, ORAL
     Route: 048
     Dates: start: 20040816
  2. EPIVIR [Suspect]
     Indication: HIV INFECTION
     Dosage: 300 MG, 1 IN 1 D, ORAL
     Route: 048
     Dates: start: 20040816
  3. EFAVIRENZ [Suspect]
     Indication: HIV INFECTION
     Dosage: ORAL
     Route: 048
     Dates: start: 20040816
  4. ZITHROMAX [Concomitant]

REACTIONS (4)
  - ANOREXIA [None]
  - CD4 LYMPHOCYTES INCREASED [None]
  - LUNG INFECTION [None]
  - MYCOBACTERIUM AVIUM COMPLEX INFECTION [None]
